FAERS Safety Report 10564462 (Version 4)
Quarter: 2015Q2

REPORT INFORMATION
  Report Type: Report from Study
  Country: TH (occurrence: TH)
  Receive Date: 20141104
  Receipt Date: 20150514
  Transmission Date: 20150821
  Serious: Yes (Hospitalization, Other)
  Sender: FDA-Public Use
  Company Number: TH-MERCK-1410THA016600

PATIENT
  Age: 37 Year
  Sex: Male

DRUGS (6)
  1. BTC [Concomitant]
     Indication: HIV INFECTION
     Dosage: 150 MG, BID
     Route: 048
     Dates: start: 20051102
  2. PEGINTERFERON ALFA-2B [Suspect]
     Active Substance: PEGINTERFERON ALFA-2B
     Dosage: 80 MICROGRAM (0.5 CC), QW
     Route: 058
     Dates: end: 20141022
  3. TENOFOVIR [Suspect]
     Active Substance: TENOFOVIR
     Indication: HIV INFECTION
     Dosage: 300 (UNIT NOT PROVIDED), QD, STRENGTH: 300 (UNIT NOT PROVIDED)
     Route: 048
     Dates: start: 20051103, end: 20141028
  4. RIBAVIRIN. [Suspect]
     Active Substance: RIBAVIRIN
     Indication: HEPATITIS C
     Dosage: TOTAL DAILY DOSE: 1000 MG, BID, STRENGTH: 200 MG
     Route: 048
     Dates: start: 20140430, end: 20141017
  5. PEGINTERFERON ALFA-2B [Suspect]
     Active Substance: PEGINTERFERON ALFA-2B
     Indication: HEPATITIS C
     Dosage: TOTAL DAILY DOSE: 96 MCG, QW, STRENGTH: 120 MCG
     Route: 058
     Dates: start: 20140430
  6. LOPINAVIR (+) RITONAVIR [Concomitant]
     Active Substance: LOPINAVIR\RITONAVIR
     Indication: HIV INFECTION
     Dosage: TOTAL DAILY DOSE 400/100 (UNITS NOT PROVIDED), BID, STRENGTH: 200/50 (UNITS NOT PROVIDED)
     Route: 048
     Dates: start: 20140313

REACTIONS (3)
  - Hypokalaemia [Recovered/Resolved]
  - Anaemia [Recovered/Resolved]
  - Pulmonary tuberculosis [Recovering/Resolving]

NARRATIVE: CASE EVENT DATE: 20141024
